FAERS Safety Report 9450857 (Version 2)
Quarter: 2013Q4

REPORT INFORMATION
  Report Type: Report from Study
  Country: CH (occurrence: CH)
  Receive Date: 20130809
  Receipt Date: 20131011
  Transmission Date: 20140711
  Serious: No
  Sender: FDA-Public Use
  Company Number: CH-PFIZER INC-2013223870

PATIENT
  Age: 66 Year
  Sex: Female
  Weight: 61 kg

DRUGS (1)
  1. TORISEL [Suspect]
     Indication: GLIOBLASTOMA
     Dosage: 20 MG, WEEKLY
     Route: 042
     Dates: start: 20120306, end: 20120821

REACTIONS (2)
  - Disease progression [Unknown]
  - Glioblastoma [Unknown]
